FAERS Safety Report 7029398-5 (Version None)
Quarter: 2010Q4

REPORT INFORMATION
  Report Type: 
  Country: None (occurrence: None)
  Receive Date: 20101005
  Receipt Date: 20100929
  Transmission Date: 20110411
  Serious: Yes (Death)
  Sender: FDA-Public Use
  Company Number: PHHY2010NL60574

PATIENT
  Sex: Male

DRUGS (17)
  1. ZOMETA [Suspect]
     Indication: GASTROINTESTINAL CARCINOMA
     Dosage: 4 MG/ 5 ML
     Route: 042
     Dates: start: 20100816
  2. LACTULOSE [Concomitant]
  3. VECTIBIX [Concomitant]
  4. PERINDOPRIL [Concomitant]
  5. METFORMIN HCL [Concomitant]
  6. DOMPERIDONE [Concomitant]
  7. HYDROCORTISONE [Concomitant]
  8. METOPROLOL [Concomitant]
  9. NITROGLYCERIN [Concomitant]
     Dosage: UNK
  10. MINOCYCLINE HCL [Concomitant]
  11. ASCAL [Concomitant]
  12. OXYCODONE HCL [Concomitant]
  13. ZALDIAR [Concomitant]
  14. INSULIN [Concomitant]
  15. PANTOPRAZOLE [Concomitant]
  16. NEXIUM [Concomitant]
  17. MEGESTROL ACETATE [Concomitant]

REACTIONS (2)
  - BONE PAIN [None]
  - DEATH [None]
